FAERS Safety Report 20819945 (Version 3)
Quarter: 2022Q2

REPORT INFORMATION
  Report Type: Report from Study
  Country: CA (occurrence: CA)
  Receive Date: 20220512
  Receipt Date: 20220602
  Transmission Date: 20220720
  Serious: Yes (Hospitalization, Other)
  Sender: FDA-Public Use
  Company Number: CA-BEH-2022145164

PATIENT
  Age: 88 Year
  Sex: Female

DRUGS (1)
  1. HAEMATE P [Suspect]
     Active Substance: ANTIHEMOPHILIC FACTOR HUMAN
     Indication: Von Willebrand^s disease
     Dosage: 4000 INTERNATIONAL UNIT, QOD - FOUR TIMES WEEKLY
     Route: 042
     Dates: start: 20190810

REACTIONS (8)
  - Hypertension [Recovered/Resolved]
  - Hypertension [Unknown]
  - Faeces discoloured [Unknown]
  - Malaise [Unknown]
  - Abdominal discomfort [Unknown]
  - Rectal haemorrhage [Not Recovered/Not Resolved]
  - No adverse event [Unknown]
  - Product dose omission issue [Unknown]

NARRATIVE: CASE EVENT DATE: 20220501
